FAERS Safety Report 4971332-3 (Version None)
Quarter: 2006Q2

REPORT INFORMATION
  Report Type: 
  Country: None (occurrence: None)
  Receive Date: 20060413
  Receipt Date: 20060331
  Transmission Date: 20061013
  Serious: Yes (Hospitalization)
  Sender: FDA-Public Use
  Company Number: US-SOLVAY-00206001140

PATIENT
  Age: 18696 Day
  Sex: Female
  Weight: 65 kg

DRUGS (2)
  1. AMBIEN [Concomitant]
     Indication: INSOMNIA
     Dosage: DAILY DOSE: 20 MILLIGRAM(S)
     Route: 048
     Dates: start: 20050501
  2. ESTRATEST [Suspect]
     Indication: MENOPAUSAL SYMPTOMS
     Dosage: DAILY DOSE: 2 DOSAGE FORM
     Route: 048
     Dates: start: 20060110, end: 20060329

REACTIONS (1)
  - CHEST PAIN [None]
